FAERS Safety Report 5061878-4 (Version None)
Quarter: 2006Q3

REPORT INFORMATION
  Report Type: 
  Country: None (occurrence: None)
  Receive Date: 20060703
  Receipt Date: 20051221
  Transmission Date: 20061208
  Serious: No
  Sender: FDA-Public Use
  Company Number: 2005S1012105

PATIENT
  Age: 51 Year
  Sex: Male
  Weight: 117.9352 kg

DRUGS (6)
  1. CLOZAPINE [Suspect]
     Indication: PSYCHOTIC DISORDER
     Dosage: 300  MG;BID;ORAL
     Route: 048
     Dates: start: 20020220, end: 20051216
  2. DEPAKOTE ER [Suspect]
     Dosage: 1500 MG;HS;PO
     Route: 048
     Dates: start: 20030812, end: 20051216
  3. METHYLCELLULOSE [Concomitant]
  4. ATORVASTATIN CALCIUM [Concomitant]
  5. RANITIDINE [Concomitant]
  6. HYDROCHLORIDE CLOPIDOGREL SULFATE [Concomitant]

REACTIONS (2)
  - GRANULOCYTOPENIA [None]
  - LEUKOPENIA [None]
